FAERS Safety Report 8009374-6 (Version None)
Quarter: 2011Q4

REPORT INFORMATION
  Report Type: 
  Country: None (occurrence: None)
  Receive Date: 20111212
  Receipt Date: 20111212
  Transmission Date: 20120403
  Serious: Yes (Life-Threatening, Disabling)
  Sender: FDA-Public Use
  Company Number: TPG2011A03094

PATIENT
  Age: 62 Year
  Sex: Female

DRUGS (6)
  1. OMACOR (EICOSAPENTAENOIC ACID, DOCOSAHEXANOIC ACID) OMEGA 3 ETHYL ESTE [Concomitant]
  2. DYNORM PLUS (HYDROCHLOROTHIAZIDE, CILAZAPRIL) [Concomitant]
  3. ACTOS [Suspect]
     Indication: TYPE 2 DIABETES MELLITUS
     Dosage: 15 MG (15 MG, 1 IN 1 D) PER ORAL
     Route: 048
     Dates: start: 20101202, end: 20110505
  4. AVANDIA [Suspect]
     Indication: DIABETES MELLITUS
     Dosage: PER ORAL
     Route: 048
  5. LIPIDIL [Concomitant]
  6. METFORMIN HCL [Concomitant]

REACTIONS (1)
  - BLADDER CANCER [None]
